FAERS Safety Report 10531433 (Version 1)
Quarter: 2014Q4

REPORT INFORMATION
  Report Type: Report from Study
  Country: US (occurrence: US)
  Receive Date: 20141021
  Receipt Date: 20141021
  Transmission Date: 20150529
  Serious: Yes (Death, Other)
  Sender: FDA-Public Use
  Company Number: PHEH2014US020805

PATIENT
  Age: 69 Year
  Sex: Female

DRUGS (2)
  1. GLEEVEC [Suspect]
     Active Substance: IMATINIB MESYLATE
     Indication: OFF LABEL USE
  2. GLEEVEC [Suspect]
     Active Substance: IMATINIB MESYLATE
     Indication: LYMPHOMA
     Route: 065

REACTIONS (6)
  - Neoplasm recurrence [Unknown]
  - Peripheral swelling [Unknown]
  - Cardiac failure [Unknown]
  - Lymphoma [Unknown]
  - Death [Fatal]
  - Pleural effusion [Unknown]

NARRATIVE: CASE EVENT DATE: 20141009
